FAERS Safety Report 18089107 (Version 2)
Quarter: 2020Q3

REPORT INFORMATION
  Report Type: Report from Study
  Country: MX (occurrence: MX)
  Receive Date: 20200729
  Receipt Date: 20200803
  Transmission Date: 20201103
  Serious: Yes (Death)
  Sender: FDA-Public Use
  Company Number: NVSC2020MX211671

PATIENT
  Age: 21 Year
  Sex: Male
  Weight: 46 kg

DRUGS (5)
  1. VOTRIENT [Suspect]
     Active Substance: PAZOPANIB HYDROCHLORIDE
     Indication: SARCOMA
     Dosage: 2 DF, BID (200 MG)
     Route: 048
     Dates: start: 202001
  2. ERYTHROPOIETIN [Concomitant]
     Active Substance: ERYTHROPOIETIN
     Indication: PRODUCT USED FOR UNKNOWN INDICATION
     Dosage: 2000 UNITS (EVERY THIRD DAYE)
     Route: 003
     Dates: start: 201908, end: 201912
  3. VOTRIENT [Suspect]
     Active Substance: PAZOPANIB HYDROCHLORIDE
     Dosage: 3 DF, QD (200 MG)
     Route: 048
     Dates: start: 202001, end: 202001
  4. VOTRIENT [Suspect]
     Active Substance: PAZOPANIB HYDROCHLORIDE
     Dosage: 4 DF, QD (200 MG)
     Route: 048
     Dates: start: 202001
  5. NAPROXEN. [Concomitant]
     Active Substance: NAPROXEN
     Indication: PAIN
     Dosage: 1 DF, Q8H (250MG)
     Route: 048
     Dates: start: 201910, end: 202006

REACTIONS (5)
  - Swelling [Fatal]
  - Sarcoma [Fatal]
  - Metastases to lung [Fatal]
  - Neoplasm progression [Fatal]
  - Pain [Fatal]

NARRATIVE: CASE EVENT DATE: 202002
